FAERS Safety Report 6925859-5 (Version None)
Quarter: 2010Q3

REPORT INFORMATION
  Report Type: 
  Country: None (occurrence: None)
  Receive Date: 20100816
  Receipt Date: 20100806
  Transmission Date: 20110219
  Serious: Yes (Other)
  Sender: FDA-Public Use
  Company Number: US-JNJCH-2010018366

PATIENT
  Age: 8 Year
  Sex: Female
  Weight: 36.3 kg

DRUGS (1)
  1. NEOSPORIN [Suspect]
     Indication: STAPHYLOCOCCAL INFECTION
     Dosage: TEXT:AS DIRECTED ONCE
     Route: 061
     Dates: start: 20100707, end: 20100707

REACTIONS (1)
  - APPLICATION SITE EROSION [None]
